FAERS Safety Report 7082679-1 (Version None)
Quarter: 2010Q4

REPORT INFORMATION
  Report Type: 
  Country: None (occurrence: None)
  Receive Date: 20101104
  Receipt Date: 20101029
  Transmission Date: 20110411
  Serious: No
  Sender: FDA-Public Use
  Company Number: US-BAXTER-2010BH023722

PATIENT
  Weight: 189 kg

DRUGS (1)
  1. DOPAMINE HCL IN 5% DEXTROSE [Suspect]
     Indication: PRODUCT USED FOR UNKNOWN INDICATION
     Route: 065

REACTIONS (2)
  - DEVICE COMPUTER ISSUE [None]
  - INCORRECT DRUG ADMINISTRATION RATE [None]
